FAERS Safety Report 19008280 (Version 1)
Quarter: 2021Q1

REPORT INFORMATION
  Report Type: Spontaneous
  Country: CN (occurrence: CN)
  Receive Date: 20210316
  Receipt Date: 20210316
  Transmission Date: 20210420
  Serious: Yes (Other)
  Sender: FDA-Public Use
  Company Number: CN-IPCA LABORATORIES LIMITED-IPC-2021-CN-000599

PATIENT

DRUGS (1)
  1. WARFARIN SODIUM. [Suspect]
     Active Substance: WARFARIN SODIUM
     Indication: PRODUCT USED FOR UNKNOWN INDICATION
     Dosage: 0.625 MILLIGRAM, QD
     Route: 065

REACTIONS (4)
  - Purpura [Recovered/Resolved]
  - Factor X deficiency [Recovered/Resolved]
  - Neurological symptom [Recovered/Resolved]
  - Anticoagulation drug level above therapeutic [Recovered/Resolved]
